FAERS Safety Report 18689113 (Version 2)
Quarter: 2021Q1

REPORT INFORMATION
  Report Type: Report from Study
  Country: IL (occurrence: IL)
  Receive Date: 20201231
  Receipt Date: 20210305
  Transmission Date: 20210419
  Serious: Yes (Death, Life-Threatening, Hospitalization)
  Sender: FDA-Public Use
  Company Number: IL-TAKEDA-IL202013974

PATIENT
  Sex: Male

DRUGS (1)
  1. VELAGLUCERASE ALFA [Suspect]
     Active Substance: VELAGLUCERASE ALFA
     Indication: GAUCHER^S DISEASE
     Dosage: 30 INTERNATIONAL UNIT/KILOGRAM, Q2WEEKS
     Route: 065
     Dates: start: 20151014

REACTIONS (3)
  - Bundle branch block right [Recovered/Resolved]
  - COVID-19 pneumonia [Fatal]
  - Syncope [Recovered/Resolved]

NARRATIVE: CASE EVENT DATE: 20200415
